FAERS Safety Report 4555866-1 (Version None)
Quarter: 2005Q1

REPORT INFORMATION
  Report Type: 
  Country: None (occurrence: None)
  Receive Date: 20050111
  Receipt Date: 20041124
  Transmission Date: 20050727
  Serious: No
  Sender: FDA-Public Use
  Company Number: 2004S1000265

PATIENT
  Age: 61 Year
  Sex: Female
  Weight: 71 kg

DRUGS (3)
  1. CUBICIN [Suspect]
     Indication: ABSCESS LIMB
     Dosage: 400 MG;Q24H;IV
     Route: 042
     Dates: start: 20041118, end: 20041126
  2. ZOSYN [Concomitant]
  3. ACETAMINOPHEN [Concomitant]

REACTIONS (1)
  - THROMBOCYTHAEMIA [None]
